FAERS Safety Report 8155056-X (Version None)
Quarter: 2012Q1

REPORT INFORMATION
  Report Type: 
  Country: None (occurrence: None)
  Receive Date: 20120221
  Receipt Date: 20120215
  Transmission Date: 20120608
  Serious: Yes (Other)
  Sender: FDA-Public Use
  Company Number: JP-PFIZER INC-2012041378

PATIENT
  Age: 88 Year
  Sex: Female

DRUGS (2)
  1. LYRICA [Suspect]
     Route: 048
  2. TRAMADOL HYDROCHLORIDE AND ACETAMINOPHEN [Concomitant]
     Dosage: UNK

REACTIONS (2)
  - INTRAOCULAR PRESSURE FLUCTUATION [None]
  - VISION BLURRED [None]
